FAERS Safety Report 8907321 (Version 2)
Quarter: 2012Q4

REPORT INFORMATION
  Report Type: 
  Country: US (occurrence: US)
  Receive Date: 20121114
  Receipt Date: 20121122
  Transmission Date: 20130627
  Serious: Yes (Hospitalization)
  Sender: FDA-Public Use
  Company Number: PHHO2012US016275

PATIENT
  Age: 46 Year
  Sex: Male
  Weight: 97.5 kg

DRUGS (1)
  1. AFINITOR [Suspect]
     Indication: CARCINOID TUMOUR
     Dosage: 5 mg, QD
     Route: 048
     Dates: start: 20080207, end: 20121107

REACTIONS (1)
  - Small intestinal obstruction [Recovering/Resolving]
